FAERS Safety Report 10531511 (Version 1)
Quarter: 2014Q4

REPORT INFORMATION
  Report Type: Spontaneous
  Country: GB (occurrence: GB)
  Receive Date: 20141021
  Receipt Date: 20141021
  Transmission Date: 20150529
  Serious: Yes (Other)
  Sender: FDA-Public Use
  Company Number: GB-TEVA-515641ISR

PATIENT
  Age: 28 Year
  Sex: Female
  Weight: 97 kg

DRUGS (4)
  1. MAXITRAM SR [Concomitant]
     Dates: start: 20140630, end: 20140730
  2. ZOPICLONE [Concomitant]
     Active Substance: ZOPICLONE
     Dates: start: 20140901, end: 20140908
  3. TRAMADOL [Suspect]
     Active Substance: TRAMADOL
  4. DICYCLOVERINE HYDROCHLORIDE [Concomitant]
     Active Substance: DICYCLOMINE HYDROCHLORIDE
     Dates: start: 20140630, end: 20140728

REACTIONS (2)
  - Nightmare [Recovered/Resolved]
  - Insomnia [Recovered/Resolved]

NARRATIVE: CASE EVENT DATE: 20140901
